FAERS Safety Report 24765679 (Version 4)
Quarter: 2025Q2

REPORT INFORMATION
  Report Type: Spontaneous
  Country: US (occurrence: US)
  Receive Date: 20241223
  Receipt Date: 20250508
  Transmission Date: 20250717
  Serious: Yes (Hospitalization, Other)
  Sender: BAYER HEALTHCARE PHARMACEUTICALS INC.
  Company Number: US-BAYER-2024A103618

PATIENT
  Age: 73 Year
  Sex: Male

DRUGS (3)
  1. NUBEQA [Suspect]
     Active Substance: DAROLUTAMIDE
     Indication: Prostate cancer
  2. SOTALOL [Concomitant]
     Active Substance: SOTALOL
  3. METOPROLOL [Concomitant]
     Active Substance: METOPROLOL

REACTIONS (15)
  - Anaphylactic shock [None]
  - Poisoning [None]
  - Terminal state [None]
  - Adverse event [None]
  - Drug hypersensitivity [None]
  - Transurethral prostatectomy [None]
  - Illness [Not Recovered/Not Resolved]
  - Intestinal obstruction [Not Recovered/Not Resolved]
  - Speech disorder [None]
  - General physical health deterioration [None]
  - Vitiligo [Recovered/Resolved]
  - Skin reaction [Recovered/Resolved]
  - Vomiting [Not Recovered/Not Resolved]
  - Faeces hard [Not Recovered/Not Resolved]
  - Weight increased [None]

NARRATIVE: CASE EVENT DATE: 20230101
